FAERS Safety Report 7086308-2 (Version None)
Quarter: 2010Q4

REPORT INFORMATION
  Report Type: 
  Country: None (occurrence: None)
  Receive Date: 20101105
  Receipt Date: 20101026
  Transmission Date: 20110411
  Serious: Yes (Hospitalization)
  Sender: FDA-Public Use
  Company Number: CA-SANOFI-AVENTIS-2010SA051832

PATIENT
  Age: 70 Year
  Sex: Female
  Weight: 68 kg

DRUGS (12)
  1. BLINDED THERAPY [Suspect]
     Route: 048
     Dates: start: 20100718, end: 20100722
  2. DRONEDARONE HCL [Suspect]
     Route: 048
     Dates: start: 20100723, end: 20100828
  3. WARFARIN SODIUM [Concomitant]
     Route: 048
  4. ATORVASTATIN CALCIUM [Concomitant]
     Route: 048
  5. ALTACE [Concomitant]
     Route: 048
  6. LASIX [Concomitant]
     Route: 048
  7. LEVOTHYROXINE SODIUM [Concomitant]
     Route: 048
  8. SLOW-K [Concomitant]
     Dosage: DOSE:1 UNIT(S)
     Route: 048
  9. COLACE [Concomitant]
     Route: 048
  10. METOPROLOL [Concomitant]
     Route: 048
  11. ASPIRIN [Concomitant]
     Route: 048
  12. DILTIAZEM [Concomitant]
     Route: 048

REACTIONS (8)
  - ATRIAL FIBRILLATION [None]
  - CARDIAC FAILURE CONGESTIVE [None]
  - CARDIAC VALVE DISEASE [None]
  - CARDIOMEGALY [None]
  - CORONARY ARTERY DISEASE [None]
  - DIARRHOEA [None]
  - PLEURAL EFFUSION [None]
  - SYNCOPE [None]
